FAERS Safety Report 7333285-2 (Version None)
Quarter: 2011Q1

REPORT INFORMATION
  Report Type: 
  Country: None (occurrence: None)
  Receive Date: 20110304
  Receipt Date: 20110221
  Transmission Date: 20110831
  Serious: Yes (Other)
  Sender: FDA-Public Use
  Company Number: FR-ELI_LILLY_AND_COMPANY-FR201102005800

PATIENT
  Age: 26 Year
  Sex: Female

DRUGS (1)
  1. ZYPADHERA [Suspect]
     Indication: SCHIZOPHRENIA
     Dosage: 405 MG, 3/W
     Route: 030
     Dates: start: 20100701

REACTIONS (5)
  - ALTERED STATE OF CONSCIOUSNESS [None]
  - ATRIAL FLUTTER [None]
  - LOSS OF CONSCIOUSNESS [None]
  - OVERDOSE [None]
  - AGITATION [None]
